FAERS Safety Report 4470394-X (Version None)
Quarter: 2004Q3

REPORT INFORMATION
  Report Type: 
  Country: None (occurrence: None)
  Receive Date: 20040910
  Receipt Date: 20040610
  Transmission Date: 20050211
  Serious: Yes (Hospitalization)
  Sender: FDA-Public Use
  Company Number: M04-341-169

PATIENT
  Age: 78 Year
  Sex: Male
  Weight: 72 kg

DRUGS (1)
  1. VELCADE [Suspect]
     Indication: MULTIPLE MYELOMA
     Dates: start: 20040327

REACTIONS (4)
  - CEREBROVASCULAR ACCIDENT [None]
  - CONSTIPATION [None]
  - DIARRHOEA [None]
  - DYSARTHRIA [None]
